FAERS Safety Report 7639871-4 (Version None)
Quarter: 2011Q3

REPORT INFORMATION
  Report Type: 
  Country: None (occurrence: None)
  Receive Date: 20110727
  Receipt Date: 20110718
  Transmission Date: 20111222
  Serious: Yes (Other)
  Sender: FDA-Public Use
  Company Number: AU-ASTRAZENECA-2011SE40350

PATIENT
  Age: 15413 Day
  Sex: Male

DRUGS (6)
  1. DISPRIN [Concomitant]
  2. LORATADINE [Concomitant]
     Indication: NASAL CONGESTION
     Route: 048
     Dates: start: 20110620
  3. LOGICIN NASAL SPRAY [Concomitant]
  4. CLARATYNE [Concomitant]
  5. BUDESONIDE [Suspect]
     Indication: NASAL CONGESTION
     Dosage: 2 PUFFS TWO TIMES A DAY
     Route: 045
     Dates: start: 20110628, end: 20110630
  6. STREPSIL LOZENGES [Concomitant]

REACTIONS (4)
  - FOREIGN BODY SENSATION IN EYES [None]
  - OCULAR HYPERAEMIA [None]
  - EYE PAIN [None]
  - DRY EYE [None]
